FAERS Safety Report 9164703 (Version 1)
Quarter: 2013Q1

REPORT INFORMATION
  Report Type: Spontaneous
  Country: GB (occurrence: None)
  Receive Date: 20130221
  Receipt Date: 20130221
  Transmission Date: 20140127
  Serious: Yes (Hospitalization)
  Sender: FDA-Public Use
  Company Number: 2013-02548

PATIENT
  Age: 53 Year
  Sex: Female
  Weight: 74 kg

DRUGS (6)
  1. LOSARTAN POTASSIUM (LOSARTAN POTASSIUM) [Suspect]
     Indication: HYPERTENSION
     Dates: start: 20111001, end: 20120813
  2. AMLODIPINE (AMLODIPINE) [Concomitant]
  3. LEVOTHYROXINE (LEVOTHYROXINE) [Concomitant]
  4. NORETHISTERONE (NORETHISTERONE) [Concomitant]
  5. SOLPADOL (CODEINE PHOSPHATE, PARACETAMOL) [Concomitant]
  6. IBUPROFEN (IBUPROFEN) [Concomitant]

REACTIONS (5)
  - Dyspnoea [None]
  - Loss of consciousness [None]
  - Unresponsive to stimuli [None]
  - Pruritus generalised [None]
  - Arthritis [None]
